FAERS Safety Report 12323822 (Version 1)
Quarter: 2016Q2

REPORT INFORMATION
  Report Type: Spontaneous
  Country: US (occurrence: US)
  Receive Date: 20160502
  Receipt Date: 20160502
  Transmission Date: 20160815
  Serious: Yes (Other)
  Sender: FDA-Public Use
  Company Number: US-BAYER-2016-082576

PATIENT
  Sex: Female

DRUGS (3)
  1. ARNICA [Concomitant]
     Active Substance: ARNICA MONTANA FLOWER
  2. ADVIL [Concomitant]
     Active Substance: IBUPROFEN
  3. CLARITIN [Suspect]
     Active Substance: LORATADINE
     Indication: SEASONAL ALLERGY
     Dosage: 10 MG, QD
     Route: 048
     Dates: start: 2002, end: 2002

REACTIONS (2)
  - Loss of consciousness [Recovered/Resolved]
  - Palpitations [Recovered/Resolved]

NARRATIVE: CASE EVENT DATE: 2002
